FAERS Safety Report 16269779 (Version 1)
Quarter: 2019Q2

REPORT INFORMATION
  Report Type: Spontaneous
  Country: US (occurrence: US)
  Receive Date: 20190329
  Receipt Date: 20190329
  Transmission Date: 20190711
  Serious: No
  Sender: FDA-Public Use
  Company Number: None

PATIENT
  Age: 21 Year
  Sex: Female

DRUGS (1)
  1. CUVITRU [Suspect]
     Active Substance: HUMAN IMMUNOGLOBULIN G
     Indication: HYPOGAMMAGLOBULINAEMIA
     Dosage: ?          OTHER STRENGTH:8 GM/40 ML;?
     Route: 058
     Dates: start: 20171013

REACTIONS (4)
  - Gastrointestinal disorder [None]
  - Diarrhoea [None]
  - Infection [None]
  - Productive cough [None]

NARRATIVE: CASE EVENT DATE: 20190318
